FAERS Safety Report 26186810 (Version 1)
Quarter: 2025Q4

REPORT INFORMATION
  Report Type: Spontaneous
  Country: US (occurrence: None)
  Receive Date: 20251220
  Receipt Date: 20251220
  Transmission Date: 20260118
  Serious: Yes (Hospitalization)
  Sender: FDA-CTU
  Company Number: None

PATIENT
  Age: 49 Year
  Sex: Male
  Weight: 91 kg

DRUGS (1)
  1. DURVALUMAB [Suspect]
     Active Substance: DURVALUMAB
     Dates: end: 20251031

REACTIONS (4)
  - Non-cardiac chest pain [None]
  - Dyspnoea [None]
  - Oropharyngeal pain [None]
  - Pneumonia [None]

NARRATIVE: CASE EVENT DATE: 20251106
